FAERS Safety Report 22780358 (Version 4)
Quarter: 2024Q1

REPORT INFORMATION
  Report Type: Report from Study
  Country: CA (occurrence: CA)
  Receive Date: 20230803
  Receipt Date: 20240307
  Transmission Date: 20240410
  Serious: Yes (Other)
  Sender: FDA-Public Use
  Company Number: CA-CELLTRION INC.-2023CA014865

PATIENT

DRUGS (8)
  1. RITUXIMAB [Suspect]
     Active Substance: RITUXIMAB
     Indication: Rheumatoid arthritis
     Dosage: 1000.0 MILLIGRAM
     Route: 042
  2. RITUXIMAB [Suspect]
     Active Substance: RITUXIMAB
     Dosage: 1000.0 MILLIGRAM
     Route: 042
  3. FENTANYL [Suspect]
     Active Substance: FENTANYL\FENTANYL CITRATE
     Indication: Arthritis
     Route: 065
  4. ACETAMINOPHEN [Concomitant]
     Active Substance: ACETAMINOPHEN
     Indication: Product used for unknown indication
     Dosage: 1000 MILLIGRAM
     Route: 048
  5. ACETAMINOPHEN [Concomitant]
     Active Substance: ACETAMINOPHEN
     Indication: Product used for unknown indication
     Dosage: 650 MILLIGRAM
     Route: 048
  6. DIPHENHYDRAMINE [Concomitant]
     Active Substance: DIPHENHYDRAMINE
     Indication: Product used for unknown indication
     Dosage: 12 MILLIGRAM
     Route: 048
  7. DIPHENHYDRAMINE [Concomitant]
     Active Substance: DIPHENHYDRAMINE
     Dosage: 50 MILLIGRAM
     Route: 048
  8. METHYLPREDNISOLONE [Concomitant]
     Active Substance: METHYLPREDNISOLONE
     Indication: Product used for unknown indication
     Dosage: 100 MILLIGRAM
     Route: 042

REACTIONS (19)
  - Arthritis [Recovered/Resolved]
  - Chest pain [Recovered/Resolved]
  - Malaise [Recovered/Resolved]
  - Mobility decreased [Recovered/Resolved]
  - Poor quality sleep [Recovered/Resolved]
  - General physical health deterioration [Recovered/Resolved]
  - Toxicity to various agents [Recovered/Resolved]
  - Somnolence [Recovered/Resolved]
  - Syncope [Recovered/Resolved]
  - Vein rupture [Recovered/Resolved]
  - Arthralgia [Recovered/Resolved]
  - Back pain [Recovered/Resolved]
  - COVID-19 [Recovered/Resolved]
  - Fatigue [Recovered/Resolved]
  - Oedema peripheral [Recovered/Resolved]
  - Pain [Recovered/Resolved]
  - Infusion site pain [Recovered/Resolved]
  - Vomiting [Recovered/Resolved]
  - Inappropriate schedule of product administration [Recovered/Resolved]
